FAERS Safety Report 8955845 (Version 2)
Quarter: 2013Q1

REPORT INFORMATION
  Report Type: Spontaneous
  Country: FR (occurrence: None)
  Receive Date: 20121130
  Receipt Date: 20130111
  Transmission Date: 20140127
  Serious: Yes (Other)
  Sender: FDA-Public Use
  Company Number: 2012-7853

PATIENT
  Age: 66 Year
  Sex: Female

DRUGS (3)
  1. DYSPORT (BOTULINUM TOXIN TYPE A) (BOTULINUM TOXIN TYPE A) [Suspect]
     Indication: TORTICOLLIS
     Dosage: (1 IN 1  CYCLE), INTRAMUSCULAR
     Dates: start: 20120704, end: 20120704
  2. BOTOX [Suspect]
     Indication: TORTICOLLIS
     Dosage: 100 UNITS (100 UNITS, 1 IN 1 CYCLE (S)), INTRAMUSCULAR
     Dates: start: 20120704, end: 20120704
  3. ARTANE (TRIHEXYPHENIDYL HYDROCHLORIDE) [Concomitant]

REACTIONS (3)
  - Weight decreased [None]
  - Dysphonia [None]
  - Dysphagia [None]
